FAERS Safety Report 13738532 (Version 1)
Quarter: 2017Q3

REPORT INFORMATION
  Report Type: Spontaneous
  Country: US (occurrence: US)
  Receive Date: 20170710
  Receipt Date: 20170710
  Transmission Date: 20171127
  Serious: No
  Sender: FDA-Public Use
  Company Number: US-SAOL THERAPEUTICS-2017SAO00137

PATIENT
  Sex: Male

DRUGS (6)
  1. BUPIVACAINE. [Suspect]
     Active Substance: BUPIVACAINE
     Dosage: 0.2849 MG, \DAY
     Route: 037
  2. BACLOFEN. [Suspect]
     Active Substance: BACLOFEN
     Dosage: 284.9 ?G, \DAY
     Route: 037
     Dates: start: 20161216, end: 20170114
  3. BACLOFEN. [Suspect]
     Active Substance: BACLOFEN
     Dosage: 256.1 ?G, \DAY
     Route: 037
     Dates: start: 20170114
  4. MORPHINE [Suspect]
     Active Substance: MORPHINE
     Dosage: 0.2421 MG, \DAY
     Route: 037
     Dates: start: 20161216, end: 20170114
  5. MORPHINE [Suspect]
     Active Substance: MORPHINE
     Dosage: 0.2177 MG, \DAY
     Route: 037
  6. BUPIVACAINE. [Suspect]
     Active Substance: BUPIVACAINE
     Dosage: 0.2561 MG, \DAY
     Route: 037
     Dates: start: 20161216, end: 20170114

REACTIONS (2)
  - Thinking abnormal [Unknown]
  - Fatigue [Unknown]
